FAERS Safety Report 5575718-8 (Version None)
Quarter: 2007Q4

REPORT INFORMATION
  Report Type: 
  Country: None (occurrence: None)
  Receive Date: 20071221
  Receipt Date: 20071207
  Transmission Date: 20080405
  Serious: Yes (Death)
  Sender: FDA-Public Use
  Company Number: S07-NLD-05777-01

PATIENT
  Age: 59 Year
  Sex: Male
  Weight: 75 kg

DRUGS (2)
  1. CITALOPRAM HYDROBROMIDE [Suspect]
     Indication: DEPRESSION
     Dosage: 20 MG QD PO
     Route: 048
     Dates: start: 20070901, end: 20070920
  2. OXAZEPAM [Suspect]
     Indication: RESTLESSNESS
     Dosage: 10 MG PRN
     Dates: start: 20070915, end: 20070901

REACTIONS (4)
  - CIRCADIAN RHYTHM SLEEP DISORDER [None]
  - COMPLETED SUICIDE [None]
  - LOSS OF EMPLOYMENT [None]
  - RESTLESSNESS [None]
